FAERS Safety Report 5842081-4 (Version None)
Quarter: 2008Q3

REPORT INFORMATION
  Report Type: 
  Country: None (occurrence: None)
  Receive Date: 20080812
  Receipt Date: 20080730
  Transmission Date: 20090109
  Serious: Yes (Hospitalization)
  Sender: FDA-Public Use
  Company Number: JP-ROCHE-578993

PATIENT
  Age: 35 Year
  Sex: Female

DRUGS (1)
  1. XELODA [Suspect]
     Indication: COLON CANCER
     Dosage: DRUG REPORTED AS: XELODA 300.
     Route: 048
     Dates: start: 20080523

REACTIONS (1)
  - VENTRICULAR FIBRILLATION [None]
